FAERS Safety Report 9672078 (Version 1)
Quarter: 2013Q4

REPORT INFORMATION
  Report Type: Spontaneous
  Country: TR (occurrence: TR)
  Receive Date: 20131106
  Receipt Date: 20131106
  Transmission Date: 20140711
  Serious: Yes (Life-Threatening, Hospitalization)
  Sender: FDA-Public Use
  Company Number: TR-PFIZER INC-2013312794

PATIENT
  Age: 44 Year
  Sex: Female

DRUGS (4)
  1. RIFAMPICIN [Suspect]
     Indication: LYMPH NODE TUBERCULOSIS
     Dosage: UNK
  2. ISONIAZIDE [Concomitant]
     Indication: LYMPH NODE TUBERCULOSIS
     Dosage: UNK
  3. PYRAZINAMIDE [Concomitant]
     Indication: LYMPH NODE TUBERCULOSIS
     Dosage: UNK
  4. ETHAMBUTOL [Concomitant]
     Indication: LYMPH NODE TUBERCULOSIS
     Dosage: UNK

REACTIONS (1)
  - Adrenocortical insufficiency acute [Recovered/Resolved]
